FAERS Safety Report 20595845 (Version 1)
Quarter: 2022Q1

REPORT INFORMATION
  Report Type: Spontaneous
  Country: DE (occurrence: DE)
  Receive Date: 20220315
  Receipt Date: 20220315
  Transmission Date: 20220423
  Serious: Yes (Other)
  Sender: FDA-Public Use
  Company Number: DE-PFIZER INC-2021632448

PATIENT
  Age: 81 Year
  Sex: Male
  Weight: 70 kg

DRUGS (3)
  1. ATORVASTATIN [Suspect]
     Active Substance: ATORVASTATIN
     Dosage: 1X/DAY
     Dates: start: 200105
  2. ASPIRIN [Concomitant]
     Active Substance: ASPIRIN
     Dosage: 1X/DAY, 100
     Dates: start: 200105
  3. ELIQUIS [Concomitant]
     Active Substance: APIXABAN
     Dosage: 2X/DAY
     Dates: start: 201905

REACTIONS (2)
  - Arrhythmia [Unknown]
  - Headache [Not Recovered/Not Resolved]

NARRATIVE: CASE EVENT DATE: 20210401
